FAERS Safety Report 21867281 (Version 2)
Quarter: 2023Q1

REPORT INFORMATION
  Report Type: Spontaneous
  Country: BE (occurrence: BE)
  Receive Date: 20230116
  Receipt Date: 20230123
  Transmission Date: 20230417
  Serious: Yes (Other)
  Sender: FDA-Public Use
  Company Number: BE-SAMSUNG BIOEPIS-SB-2023-01176

PATIENT
  Age: 79 Year
  Sex: Male

DRUGS (2)
  1. TRASTUZUMAB [Suspect]
     Active Substance: TRASTUZUMAB
     Indication: HER2 positive breast cancer
     Dosage: UNKNOWN
     Route: 065
  2. PACLITAXEL [Suspect]
     Active Substance: PACLITAXEL
     Indication: HER2 positive breast cancer
     Dosage: UNKNOWN
     Route: 065

REACTIONS (4)
  - Ulcerative keratitis [Not Recovered/Not Resolved]
  - Meningoencephalitis herpetic [Unknown]
  - Herpes ophthalmic [Unknown]
  - Cell-mediated cytotoxicity [Unknown]
